FAERS Safety Report 18360706 (Version 1)
Quarter: 2020Q4

REPORT INFORMATION
  Report Type: Spontaneous
  Country: PT (occurrence: PT)
  Receive Date: 20201008
  Receipt Date: 20201008
  Transmission Date: 20210114
  Serious: Yes (Hospitalization, Other)
  Sender: FDA-Public Use
  Company Number: PT-GALDERMA-PT2020044716

PATIENT
  Age: 47 Year
  Sex: Female

DRUGS (3)
  1. IMMNUGLOBULIN G [Concomitant]
     Indication: IMMUNODEFICIENCY COMMON VARIABLE
     Route: 065
  2. DOXYCYCLINE. [Suspect]
     Active Substance: DOXYCYCLINE
     Indication: PERITONITIS BACTERIAL
     Route: 065
  3. MEROPENEM. [Concomitant]
     Active Substance: MEROPENEM
     Indication: PERITONITIS BACTERIAL
     Route: 065

REACTIONS (11)
  - Hepatomegaly [Unknown]
  - Tubulointerstitial nephritis [Unknown]
  - Renal impairment [Unknown]
  - Ascites [Unknown]
  - Amyloidosis [Unknown]
  - Generalised oedema [Unknown]
  - Hypervolaemia [Unknown]
  - Intentional product use issue [Recovered/Resolved]
  - Kidney enlargement [Unknown]
  - Anuria [Unknown]
  - Proteinuria [Unknown]
